FAERS Safety Report 11519725 (Version 3)
Quarter: 2015Q4

REPORT INFORMATION
  Report Type: Spontaneous
  Country: US (occurrence: US)
  Receive Date: 20150918
  Receipt Date: 20151026
  Transmission Date: 20160304
  Serious: Yes (Death, Hospitalization)
  Sender: FDA-Public Use
  Company Number: US-ROCHE-1634138

PATIENT
  Age: 68 Year
  Sex: Male
  Weight: 122.58 kg

DRUGS (2)
  1. OXYGEN. [Concomitant]
     Active Substance: OXYGEN
     Dosage: 4 TO 4.5 L/M
     Route: 065
  2. ESBRIET [Suspect]
     Active Substance: PIRFENIDONE
     Indication: IDIOPATHIC PULMONARY FIBROSIS
     Dosage: 2403MG PER DAY
     Route: 048
     Dates: start: 20150505

REACTIONS (10)
  - Death [Fatal]
  - Gastric disorder [Unknown]
  - Bloody discharge [Unknown]
  - Blood potassium increased [Unknown]
  - Haemoptysis [Unknown]
  - Pharyngitis streptococcal [Unknown]
  - Tooth fracture [Unknown]
  - Infection [Unknown]
  - Cough [Unknown]
  - Oropharyngeal pain [Unknown]

NARRATIVE: CASE EVENT DATE: 20150706
